FAERS Safety Report 14125171 (Version 1)
Quarter: 2017Q4

REPORT INFORMATION
  Report Type: Spontaneous
  Country: US (occurrence: US)
  Receive Date: 20171025
  Receipt Date: 20171025
  Transmission Date: 20180321
  Serious: No
  Sender: FDA-Public Use
  Company Number: US-PERRIGO-16US021742

PATIENT
  Age: 36 Year
  Sex: Female
  Weight: 72.56 kg

DRUGS (2)
  1. NICOTINE POLACRILEX [Suspect]
     Active Substance: NICOTINE
     Indication: SMOKING CESSATION THERAPY
     Dosage: 2 MG, UNKNOWN
     Route: 002
     Dates: start: 201609, end: 201611
  2. NICOTINE POLACRILEX [Suspect]
     Active Substance: NICOTINE
     Dosage: 2 MG, SINGLE
     Route: 002
     Dates: start: 20161108, end: 20161108

REACTIONS (2)
  - Dyspnoea [Recovered/Resolved]
  - Dyspepsia [Recovered/Resolved]

NARRATIVE: CASE EVENT DATE: 201609
